FAERS Safety Report 23327184 (Version 1)
Quarter: 2023Q4

REPORT INFORMATION
  Report Type: Spontaneous
  Country: CN (occurrence: CN)
  Receive Date: 20231221
  Receipt Date: 20231221
  Transmission Date: 20240110
  Serious: Yes (Other)
  Sender: FDA-Public Use
  Company Number: CN-PFIZER INC-PV202300204290

PATIENT
  Age: 7 Year
  Sex: Female

DRUGS (2)
  1. ZITHROMAX [Suspect]
     Active Substance: AZITHROMYCIN DIHYDRATE
     Indication: Anti-infective therapy
     Dosage: 10 MG/KG, 1X/DAY
     Route: 048
     Dates: start: 20231205, end: 20231208
  2. ZITHROMAX [Suspect]
     Active Substance: AZITHROMYCIN DIHYDRATE
     Indication: Pneumonia

REACTIONS (1)
  - Electrocardiogram QRS complex prolonged [Recovered/Resolved]

NARRATIVE: CASE EVENT DATE: 20231208
